FAERS Safety Report 11323727 (Version 2)
Quarter: 2015Q3

REPORT INFORMATION
  Report Type: Report from Study
  Country: CA (occurrence: CA)
  Receive Date: 20150730
  Receipt Date: 20150817
  Transmission Date: 20151125
  Serious: Yes (Other)
  Sender: FDA-Public Use
  Company Number: CA-JNJFOC-20150719586

PATIENT
  Age: 38 Year
  Sex: Female
  Weight: 70 kg

DRUGS (6)
  1. REMICADE [Suspect]
     Active Substance: INFLIXIMAB
     Indication: CROHN^S DISEASE
     Route: 042
     Dates: start: 20121128
  2. RANITIDINE [Concomitant]
     Active Substance: RANITIDINE\RANITIDINE HYDROCHLORIDE
     Route: 065
  3. REMICADE [Suspect]
     Active Substance: INFLIXIMAB
     Indication: CROHN^S DISEASE
     Dosage: THERAPY DURATION: 48 (UNIT UNSPECIFIED)
     Route: 042
     Dates: start: 20131217
  4. BUSCOPAN [Concomitant]
     Active Substance: BUTYLSCOPOLAMINE BROMIDE
     Route: 065
  5. GLUCOSAMINE / CHONDROITIN [Concomitant]
     Route: 065
  6. MAXALT [Concomitant]
     Active Substance: RIZATRIPTAN BENZOATE
     Route: 065

REACTIONS (4)
  - Frequent bowel movements [Unknown]
  - Hysterectomy [Recovered/Resolved]
  - Oophorectomy [Recovered/Resolved]
  - Gastrointestinal pain [Unknown]

NARRATIVE: CASE EVENT DATE: 201507
